APPROVED DRUG PRODUCT: BLEPHAMIDE S.O.P.
Active Ingredient: PREDNISOLONE ACETATE; SULFACETAMIDE SODIUM
Strength: 0.2%;10%
Dosage Form/Route: OINTMENT;OPHTHALMIC
Application: A087748 | Product #001
Applicant: ALLERGAN PHARMACEUTICAL
Approved: Dec 3, 1986 | RLD: No | RS: No | Type: DISCN